FAERS Safety Report 18928415 (Version 1)
Quarter: 2021Q1

REPORT INFORMATION
  Report Type: Spontaneous
  Country: US (occurrence: US)
  Receive Date: 20210223
  Receipt Date: 20210223
  Transmission Date: 20210420
  Serious: Yes (Other)
  Sender: FDA-Public Use
  Company Number: US-MYLANLABS-2021M1011371

PATIENT
  Age: 75 Year
  Sex: Female

DRUGS (2)
  1. INSULIN GLARGINE [Suspect]
     Active Substance: INSULIN GLARGINE
     Indication: HYPERGLYCAEMIA
     Dosage: UNK
     Route: 065
  2. FUROSEMIDE. [Suspect]
     Active Substance: FUROSEMIDE
     Indication: GENERALISED OEDEMA
     Dosage: UNK
     Route: 065

REACTIONS (3)
  - Weight increased [Recovered/Resolved]
  - Generalised oedema [Recovered/Resolved]
  - Drug ineffective [Unknown]
